FAERS Safety Report 7790948-2 (Version None)
Quarter: 2011Q3

REPORT INFORMATION
  Report Type: 
  Country: None (occurrence: None)
  Receive Date: 20110930
  Receipt Date: 20110930
  Transmission Date: 20111222
  Serious: No
  Sender: FDA-Public Use
  Company Number: None

PATIENT
  Age: 45 Year
  Sex: Female
  Weight: 64.863 kg

DRUGS (1)
  1. MONISTAT [Suspect]
     Indication: FUNGAL INFECTION
     Dosage: 1200MG
     Route: 067
     Dates: start: 20110921, end: 20110922

REACTIONS (4)
  - APPLICATION SITE PRURITUS [None]
  - APPLICATION SITE SWELLING [None]
  - APPLICATION SITE ERYTHEMA [None]
  - APPLICATION SITE PAIN [None]
